FAERS Safety Report 13692483 (Version 2)
Quarter: 2017Q4

REPORT INFORMATION
  Report Type: Spontaneous
  Country: CA (occurrence: CA)
  Receive Date: 20170627
  Receipt Date: 20171129
  Transmission Date: 20180320
  Serious: Yes (Hospitalization, Other)
  Sender: FDA-Public Use
  Company Number: CA-CONCORDIA PHARMACEUTICALS INC.-GSH201706-003779

PATIENT
  Age: 59 Year
  Sex: Female

DRUGS (12)
  1. CELEBREX [Suspect]
     Active Substance: CELECOXIB
     Indication: PRODUCT USED FOR UNKNOWN INDICATION
     Route: 065
  2. LYRICA [Concomitant]
     Active Substance: PREGABALIN
  3. PLAQUENIL [Suspect]
     Active Substance: HYDROXYCHLOROQUINE SULFATE
     Indication: PAIN
     Route: 048
  4. HYDROMORPH CONTIN [Concomitant]
     Active Substance: HYDROMORPHONE
  5. ARAVA [Suspect]
     Active Substance: LEFLUNOMIDE
     Indication: PRODUCT USED FOR UNKNOWN INDICATION
     Route: 048
     Dates: end: 201003
  6. PREDNISONE. [Suspect]
     Active Substance: PREDNISONE
     Indication: PAIN
     Route: 065
  7. ENBREL [Suspect]
     Active Substance: ETANERCEPT
     Indication: RHEUMATOID ARTHRITIS
     Route: 058
     Dates: start: 200904, end: 200909
  8. METHOTREXATE. [Suspect]
     Active Substance: METHOTREXATE
     Indication: PAIN
     Route: 065
  9. ACTEMRA [Concomitant]
     Active Substance: TOCILIZUMAB
  10. ENBREL [Suspect]
     Active Substance: ETANERCEPT
     Indication: PAIN
  11. DILAUDID [Concomitant]
     Active Substance: HYDROMORPHONE HYDROCHLORIDE
  12. FUROSEMIDE. [Concomitant]
     Active Substance: FUROSEMIDE

REACTIONS (28)
  - Pain [Unknown]
  - Loss of personal independence in daily activities [Unknown]
  - Dermatitis [Unknown]
  - Psychiatric symptom [Unknown]
  - Sepsis [Unknown]
  - Deformity [Unknown]
  - Encephalitis brain stem [Unknown]
  - Spinal deformity [Unknown]
  - Peripheral swelling [Unknown]
  - Amnesia [Unknown]
  - Encephalitis [Unknown]
  - Rheumatoid arthritis [Unknown]
  - Joint destruction [Unknown]
  - Depressed mood [Unknown]
  - Scar [Unknown]
  - Immune system disorder [Unknown]
  - Immobile [Unknown]
  - Seizure [Unknown]
  - Rib fracture [Unknown]
  - Fibromyalgia [Unknown]
  - Immunodeficiency [Unknown]
  - Drug ineffective [Unknown]
  - Fall [Unknown]
  - Insomnia [Unknown]
  - Cardiovascular disorder [Unknown]
  - Memory impairment [Unknown]
  - Cystitis [Unknown]
  - Vomiting [Recovered/Resolved]

NARRATIVE: CASE EVENT DATE: 2010
